FAERS Safety Report 12261513 (Version 5)
Quarter: 2017Q2

REPORT INFORMATION
  Report Type: Report from Study
  Country: US (occurrence: US)
  Receive Date: 20160412
  Receipt Date: 20170613
  Transmission Date: 20170830
  Serious: Yes (Other)
  Sender: FDA-Public Use
  Company Number: US-ASTRAZENECA-2016SE00519

PATIENT
  Age: 25742 Day
  Sex: Male

DRUGS (5)
  1. TAGRISSO [Suspect]
     Active Substance: OSIMERTINIB
     Indication: LUNG NEOPLASM MALIGNANT
     Route: 048
     Dates: start: 20170210
  2. IRESSA [Suspect]
     Active Substance: GEFITINIB
     Indication: LUNG CARCINOMA CELL TYPE UNSPECIFIED STAGE 0
     Route: 048
     Dates: start: 20151211
  3. IRESSA [Suspect]
     Active Substance: GEFITINIB
     Indication: LEUKAEMIA
     Route: 048
     Dates: start: 20151211
  4. IRESSA [Suspect]
     Active Substance: GEFITINIB
     Indication: LEUKAEMIA
     Route: 048
     Dates: start: 20160222, end: 20161015
  5. IRESSA [Suspect]
     Active Substance: GEFITINIB
     Indication: LUNG CARCINOMA CELL TYPE UNSPECIFIED STAGE 0
     Route: 048
     Dates: start: 20160222, end: 20161015

REACTIONS (14)
  - Urinary incontinence [Unknown]
  - Blood urine present [Unknown]
  - Rash generalised [Unknown]
  - Pain in extremity [Unknown]
  - Back pain [Unknown]
  - Liver disorder [Recovered/Resolved]
  - Dysuria [Unknown]
  - Purpura [Unknown]
  - Headache [Unknown]
  - Product use in unapproved indication [Recovered/Resolved]
  - Abdominal pain lower [Unknown]
  - Bladder pain [Recovering/Resolving]
  - Dry skin [Unknown]
  - Off label use [Recovered/Resolved]

NARRATIVE: CASE EVENT DATE: 20151211
